FAERS Safety Report 7230771-0 (Version None)
Quarter: 2011Q1

REPORT INFORMATION
  Report Type: 
  Country: None (occurrence: None)
  Receive Date: 20110118
  Receipt Date: 20110111
  Transmission Date: 20110831
  Serious: No
  Sender: FDA-Public Use
  Company Number: US-B.I. PHARMACEUTICALS,INC./RIDGEFIELD-2010-BP-14126BP

PATIENT
  Sex: Female

DRUGS (16)
  1. SIMVASTATIN [Concomitant]
     Indication: BLOOD CHOLESTEROL INCREASED
     Dosage: 40 MG
     Route: 048
  2. LISINOPRIL AND HYDROCHLOROTHIAZIDE [Concomitant]
     Indication: HYPERTENSION
     Route: 048
  3. FUROSEMIDE [Concomitant]
     Indication: FLUID RETENTION
     Dosage: 40 MG
     Route: 048
  4. AMIODARONE [Concomitant]
     Indication: ATRIAL FIBRILLATION
     Dosage: 400 MG
     Route: 048
  5. METOPROLOL [Concomitant]
     Indication: HYPERTENSION
     Dosage: 25 MG
     Route: 048
  6. POTASSIUM [Concomitant]
     Dosage: 30 MG
     Route: 048
  7. ASPIRIN [Concomitant]
     Indication: CARDIOVASCULAR EVENT PROPHYLAXIS
     Route: 048
  8. ACETAMINOPHEN AND HYDROCODONE BITARTRATE [Concomitant]
     Indication: PAIN
     Route: 048
  9. METFORMIN [Concomitant]
     Indication: DIABETES MELLITUS
     Dosage: 850 MG
     Route: 048
  10. NITROGLYCERIN [Concomitant]
     Indication: CHEST PAIN
     Route: 060
  11. EFFIENT [Concomitant]
     Indication: HEART RATE IRREGULAR
     Dosage: 10 MG
     Route: 048
     Dates: start: 20101101
  12. ROZEREM [Concomitant]
     Indication: INSOMNIA
     Route: 048
  13. PRADAXA [Suspect]
     Indication: ANTICOAGULANT THERAPY
     Dosage: 300 MG
     Route: 048
     Dates: start: 20101118
  14. PRADAXA [Suspect]
     Indication: HEART RATE IRREGULAR
  15. FISH OIL [Concomitant]
     Indication: CARDIOVASCULAR EVENT PROPHYLAXIS
     Dosage: 2000 MG
     Route: 048
  16. TYLENOL PM [Concomitant]
     Indication: INSOMNIA
     Route: 048

REACTIONS (4)
  - ABNORMAL DREAMS [None]
  - SINUS HEADACHE [None]
  - POOR QUALITY SLEEP [None]
  - HEADACHE [None]
